FAERS Safety Report 19408103 (Version 2)
Quarter: 2021Q2

REPORT INFORMATION
  Report Type: Report from Study
  Country: RU (occurrence: RU)
  Receive Date: 20210611
  Receipt Date: 20210625
  Transmission Date: 20210717
  Serious: Yes (Hospitalization)
  Sender: FDA-Public Use
  Company Number: NVSC2021RU130121

PATIENT
  Age: 64 Year
  Sex: Female
  Weight: 81.3 kg

DRUGS (10)
  1. BLINDED NO TREATMENT RECEIVED [Suspect]
     Active Substance: INVESTIGATIONAL PRODUCT
     Indication: PSORIATIC ARTHROPATHY
     Dosage: CODE NOT BROKEN
     Route: 042
     Dates: start: 20200722
  2. DEXAMETHASONE. [Suspect]
     Active Substance: DEXAMETHASONE
     Indication: PERITONSILLAR ABSCESS
     Dosage: UNK
     Route: 065
     Dates: start: 20210523, end: 20210527
  3. BLINDED AIN457 [Suspect]
     Active Substance: SECUKINUMAB
     Indication: PSORIATIC ARTHROPATHY
     Dosage: CODE NOT BROKEN
     Route: 042
     Dates: start: 20200722
  4. SECUKINUMAB. [Suspect]
     Active Substance: SECUKINUMAB
     Indication: PSORIATIC ARTHROPATHY
     Dosage: CODE NOT BROKEN
     Route: 042
     Dates: start: 20201221
  5. OMEPRAZOLE. [Suspect]
     Active Substance: OMEPRAZOLE
     Indication: PSORIATIC ARTHROPATHY
     Dosage: UNK
     Route: 065
  6. CEFTRIAXONE. [Suspect]
     Active Substance: CEFTRIAXONE
     Indication: PERITONSILLAR ABSCESS
     Dosage: UNK
     Route: 065
     Dates: start: 20210523, end: 20210530
  7. KETOROLAC [Suspect]
     Active Substance: KETOROLAC TROMETHAMINE
     Indication: PERITONSILLAR ABSCESS
     Dosage: UNK
     Route: 065
     Dates: start: 20210523, end: 20210525
  8. FOLIC ACID. [Concomitant]
     Active Substance: FOLIC ACID
     Indication: PSORIATIC ARTHROPATHY
     Route: 065
  9. PLACEBO [Suspect]
     Active Substance: UNSPECIFIED INGREDIENT
     Indication: PSORIATIC ARTHROPATHY
     Dosage: CODE NOT BROKEN
     Route: 042
     Dates: start: 20200722
  10. METHOTREXATE. [Concomitant]
     Active Substance: METHOTREXATE
     Indication: PSORIATIC ARTHROPATHY
     Dosage: UNK
     Route: 065
     Dates: start: 20200211

REACTIONS (1)
  - Peritonsillar abscess [Recovered/Resolved]

NARRATIVE: CASE EVENT DATE: 20210523
